FAERS Safety Report 6594338-X (Version None)
Quarter: 2010Q1

REPORT INFORMATION
  Report Type: 
  Country: None (occurrence: None)
  Receive Date: 20100222
  Receipt Date: 20100212
  Transmission Date: 20100710
  Serious: Yes (Hospitalization)
  Sender: FDA-Public Use
  Company Number: JP-JNJFOC-20100101022

PATIENT
  Sex: Male
  Weight: 63 kg

DRUGS (23)
  1. REMICADE [Suspect]
     Indication: VASCULITIS
     Route: 042
  2. REMICADE [Suspect]
     Route: 042
  3. REMICADE [Suspect]
     Route: 042
  4. PREDNISOLONE [Suspect]
     Indication: VASCULITIS
     Route: 048
  5. PREDNISOLONE [Suspect]
     Route: 048
  6. PENTAMIDINE [Concomitant]
     Indication: PROPHYLAXIS
  7. METHOTREXATE [Concomitant]
     Indication: VASCULITIS
     Route: 048
  8. METHOTREXATE [Concomitant]
     Route: 048
  9. EPLERENONE [Concomitant]
     Indication: HYPERTENSION
     Route: 048
  10. ADALAT CC [Concomitant]
     Indication: HYPERTENSION
     Route: 048
  11. DIOVAN [Concomitant]
     Indication: HYPERTENSION
     Route: 048
  12. MUCOSAL (AMBROXOL HYDROCHLORIDE) [Concomitant]
     Indication: COUGH
     Route: 048
  13. RIZE [Concomitant]
     Indication: INSOMNIA
     Route: 048
  14. PREDONINE [Concomitant]
  15. PREDONINE [Concomitant]
  16. CYCLOPHOSPHAMIDE [Concomitant]
     Route: 042
  17. ALFAROL [Concomitant]
     Indication: OSTEOPOROSIS
     Route: 048
  18. MAGLAX [Concomitant]
     Indication: CONSTIPATION
     Route: 048
  19. ISCOTIN [Concomitant]
     Indication: ANTIBIOTIC PROPHYLAXIS
     Route: 048
  20. PYDOXAL [Concomitant]
     Indication: ANTIBIOTIC PROPHYLAXIS
     Route: 048
  21. TAKEPRON [Concomitant]
     Indication: GASTROOESOPHAGEAL REFLUX DISEASE
     Route: 048
  22. FOSAMAC [Concomitant]
     Indication: OSTEOPOROSIS
     Route: 048
  23. FOLIAMIN [Concomitant]
     Indication: VASCULITIS
     Route: 048

REACTIONS (3)
  - BLOOD CREATININE INCREASED [None]
  - HYPONATRAEMIA [None]
  - PNEUMOCYSTIS JIROVECI PNEUMONIA [None]
